FAERS Safety Report 8876632 (Version 2)
Quarter: 2013Q1

REPORT INFORMATION
  Report Type: Spontaneous
  Country: NO (occurrence: NO)
  Receive Date: 20121029
  Receipt Date: 20130201
  Transmission Date: 20140127
  Serious: Yes (Disabling, Congenital Anomaly)
  Sender: FDA-Public Use
  Company Number: PHHY2012NO093560

PATIENT
  Sex: Male

DRUGS (2)
  1. FLUOXETINE [Suspect]
     Dosage: 20 MG, QD
     Route: 064
     Dates: start: 20100511, end: 20101013
  2. FLUOXETINE [Suspect]

REACTIONS (9)
  - Small for dates baby [Not Recovered/Not Resolved]
  - Blindness [Not Recovered/Not Resolved]
  - Fallot^s tetralogy [Not Recovered/Not Resolved]
  - Microcephaly [Not Recovered/Not Resolved]
  - Motor developmental delay [Not Recovered/Not Resolved]
  - Cleft lip and palate [Not Recovered/Not Resolved]
  - Congenital eye disorder [Not Recovered/Not Resolved]
  - Congenital central nervous system anomaly [Not Recovered/Not Resolved]
  - Foetal exposure during pregnancy [Not Recovered/Not Resolved]
